FAERS Safety Report 10175691 (Version 1)
Quarter: 2014Q2

REPORT INFORMATION
  Report Type: Spontaneous
  Country: US (occurrence: US)
  Receive Date: 20140516
  Receipt Date: 20140516
  Transmission Date: 20141212
  Serious: Yes (Hospitalization)
  Sender: FDA-Public Use
  Company Number: US-ASTRAZENECA-2014SE31304

PATIENT
  Age: 74 Year
  Sex: Female

DRUGS (9)
  1. FELODIPINE [Suspect]
     Route: 048
  2. FELODIPINE [Interacting]
     Dosage: RESTARTED
     Route: 048
  3. CLARITHROMYCIN [Interacting]
     Indication: HELICOBACTER INFECTION
  4. OMEPRAZOLE [Concomitant]
  5. NEBIVOLOL [Concomitant]
  6. VALSARTAN [Concomitant]
  7. LOVASTATIN [Concomitant]
  8. AMOXICILLIN [Concomitant]
     Indication: HELICOBACTER INFECTION
  9. LANZOPRAZOLE [Concomitant]
     Indication: HELICOBACTER INFECTION

REACTIONS (9)
  - Drug interaction [Recovered/Resolved]
  - Bradycardia [Recovered/Resolved]
  - Renal failure acute [Recovered/Resolved]
  - Metabolic acidosis [Recovered/Resolved]
  - Hypotension [Recovered/Resolved]
  - Nausea [Recovered/Resolved]
  - Vomiting [Recovered/Resolved]
  - Abdominal pain [Recovered/Resolved]
  - Dizziness [Recovered/Resolved]
